FAERS Safety Report 8802506 (Version 5)
Quarter: 2013Q1

REPORT INFORMATION
  Report Type: Spontaneous
  Country: US (occurrence: US)
  Receive Date: 20120921
  Receipt Date: 20130204
  Transmission Date: 20140127
  Serious: Yes (Hospitalization, Disabling, Other)
  Sender: FDA-Public Use
  Company Number: US-009507513-1203USA00313

PATIENT
  Sex: Female

DRUGS (8)
  1. FOSAMAX [Suspect]
     Indication: OSTEOPENIA
     Dosage: 70 MG, UNK
     Route: 048
     Dates: start: 1998, end: 200801
  2. FOSAMAX [Suspect]
     Indication: OSTEOPENIA
     Dosage: 70 MG, UNK
     Route: 048
     Dates: start: 1998, end: 200801
  3. ALENDRONATE SODIUM [Suspect]
     Indication: OSTEOPENIA
     Dosage: 35 MG, UNK
     Route: 048
     Dates: start: 200803, end: 2010
  4. ALENDRONATE SODIUM [Suspect]
     Dosage: 70 MG, UNK
     Route: 048
     Dates: start: 200803, end: 2010
  5. ACTONEL [Suspect]
     Indication: OSTEOPENIA
     Dosage: 35 MG, UNK
     Route: 048
     Dates: start: 200204, end: 200801
  6. VITAMINS (UNSPECIFIED) [Concomitant]
     Dosage: 2, QD
     Dates: start: 1998
  7. CALCIUM D3 [Concomitant]
     Dosage: 3, QD
     Dates: start: 1998
  8. INSULIN [Concomitant]
     Dosage: INSULIN PUMP

REACTIONS (44)
  - Femur fracture [Unknown]
  - Open reduction of fracture [Unknown]
  - Medical device pain [Unknown]
  - Fracture nonunion [Unknown]
  - Medical device removal [Unknown]
  - Carpal tunnel decompression [Unknown]
  - Tonsillectomy [Unknown]
  - Device failure [Unknown]
  - Eye operation [Unknown]
  - Appendicectomy [Unknown]
  - Thrombocytopenia [Unknown]
  - Anaemia postoperative [Unknown]
  - Diabetes mellitus [Unknown]
  - Transfusion [Unknown]
  - Post procedural complication [Unknown]
  - Migraine [Not Recovered/Not Resolved]
  - Autonomic neuropathy [Not Recovered/Not Resolved]
  - Drug dependence [Unknown]
  - Hypertension [Unknown]
  - Drug dependence [Not Recovered/Not Resolved]
  - Hypercholesterolaemia [Unknown]
  - Bursitis [Unknown]
  - Diabetic gastropathy [Unknown]
  - Low turnover osteopathy [Unknown]
  - Diabetic retinopathy [Unknown]
  - Tooth disorder [Unknown]
  - Coronary artery disease [Unknown]
  - Panic attack [Unknown]
  - Endometriosis [Recovered/Resolved]
  - Hysterectomy [Recovered/Resolved]
  - Bursitis [Unknown]
  - Transaminases increased [Unknown]
  - Meniscal degeneration [Unknown]
  - Leukocytosis [Recovered/Resolved]
  - Hyponatraemia [Unknown]
  - Pain [Unknown]
  - Acute stress disorder [Unknown]
  - Dehydration [Unknown]
  - Nausea [Unknown]
  - Gastritis [Unknown]
  - Female genital operation [Unknown]
  - Coronary artery bypass [Unknown]
  - Constipation [Unknown]
  - Osteoporosis [Unknown]
